FAERS Safety Report 9306333 (Version 6)
Quarter: 2013Q3

REPORT INFORMATION
  Report Type: Spontaneous
  Country: US (occurrence: US)
  Receive Date: 20130523
  Receipt Date: 20130930
  Transmission Date: 20140515
  Serious: Yes (Other)
  Sender: FDA-Public Use
  Company Number: US-JNJFOC-20130510601

PATIENT
  Sex: Male

DRUGS (8)
  1. RISPERDAL [Suspect]
     Indication: DEVELOPMENTAL DELAY
     Route: 048
     Dates: start: 200011
  2. RISPERDAL [Suspect]
     Indication: DEVELOPMENTAL DELAY
     Route: 048
  3. RISPERDAL [Suspect]
     Indication: HEADACHE
     Route: 048
     Dates: start: 200011
  4. RISPERDAL [Suspect]
     Indication: HEADACHE
     Route: 048
  5. RISPERDAL [Suspect]
     Indication: AUTISM
     Route: 048
  6. RISPERDAL [Suspect]
     Indication: AUTISM
     Route: 048
     Dates: start: 200011
  7. RISPERDAL [Suspect]
     Indication: ATTENTION DEFICIT/HYPERACTIVITY DISORDER
     Route: 048
  8. RISPERDAL [Suspect]
     Indication: ATTENTION DEFICIT/HYPERACTIVITY DISORDER
     Route: 048
     Dates: start: 200011

REACTIONS (7)
  - Tardive dyskinesia [Unknown]
  - Glucose tolerance impaired [Unknown]
  - Hyperprolactinaemia [Unknown]
  - Emotional distress [Unknown]
  - Drug dependence [Unknown]
  - Gynaecomastia [Unknown]
  - Weight increased [Unknown]
